FAERS Safety Report 13648854 (Version 1)
Quarter: 2017Q2

REPORT INFORMATION
  Report Type: Spontaneous
  Country: US (occurrence: US)
  Receive Date: 20170613
  Receipt Date: 20170613
  Transmission Date: 20170830
  Serious: Yes (Hospitalization)
  Sender: FDA-Public Use
  Company Number: US-ELI_LILLY_AND_COMPANY-US201706003686

PATIENT
  Age: 66 Year
  Sex: Male

DRUGS (1)
  1. ERBITUX [Suspect]
     Active Substance: CETUXIMAB
     Indication: HEAD AND NECK CANCER
     Dosage: 250 MG/M2, UNKNOWN
     Route: 042
     Dates: start: 201703

REACTIONS (5)
  - Mucosal inflammation [Unknown]
  - Rectal abscess [Unknown]
  - Oral herpes [Unknown]
  - Drug dose omission [Unknown]
  - Rash [Unknown]

NARRATIVE: CASE EVENT DATE: 201705
